FAERS Safety Report 23648759 (Version 1)
Quarter: 2024Q1

REPORT INFORMATION
  Report Type: Spontaneous
  Country: GB (occurrence: GB)
  Receive Date: 20240319
  Receipt Date: 20240319
  Transmission Date: 20240410
  Serious: Yes (Other)
  Sender: FDA-Public Use
  Company Number: GB-BAXTER-2024BAX013114

PATIENT

DRUGS (16)
  1. OMEPRAZOLE [Suspect]
     Active Substance: OMEPRAZOLE
     Indication: Product used for unknown indication
     Dosage: 40 MG (MILLIGRAM) AT AN UNSPECIFIED FREQUENCY
     Route: 048
     Dates: start: 20240201
  2. UNSPECIFIED INGREDIENT [Suspect]
     Active Substance: UNSPECIFIED INGREDIENT
     Indication: Product used for unknown indication
     Dosage: CITRATE BUFFER PH 6.5-7.5
     Route: 065
  3. UNSPECIFIED INGREDIENT [Suspect]
     Active Substance: UNSPECIFIED INGREDIENT
     Dosage: CITRATE BUFFER PH 6.5-7.5
     Route: 042
  4. UNSPECIFIED INGREDIENT [Suspect]
     Active Substance: UNSPECIFIED INGREDIENT
     Dosage: CITRATE BUFFER PH 6.5-7.5
     Route: 065
  5. LAMIVUDINE [Suspect]
     Active Substance: LAMIVUDINE
     Indication: Product used for unknown indication
     Dosage: 50/300 MG AT AN UNSPECIFIED FREQUENCY
     Route: 048
     Dates: start: 20230504
  6. DOLUTEGRAVIR [Suspect]
     Active Substance: DOLUTEGRAVIR
     Indication: Product used for unknown indication
     Dosage: 50/300 MG AT AN UNSPECIFIED FREQUENCY
     Route: 048
     Dates: start: 20230504
  7. FLUCLOXACILLIN [Suspect]
     Active Substance: FLUCLOXACILLIN
     Indication: Product used for unknown indication
     Dosage: UNK
     Route: 065
  8. FLUCLOXACILLIN [Suspect]
     Active Substance: FLUCLOXACILLIN
     Indication: Cellulitis orbital
     Dosage: UNK
     Route: 065
  9. FLUCLOXACILLIN [Suspect]
     Active Substance: FLUCLOXACILLIN
     Dosage: 12 G (GRAM) AT AN UNSPECIFIED FREQUENCY
     Route: 042
  10. SODIUM CHLORIDE [Suspect]
     Active Substance: SODIUM CHLORIDE
     Indication: Product used for unknown indication
     Dosage: UNK
     Route: 065
  11. SODIUM CHLORIDE [Suspect]
     Active Substance: SODIUM CHLORIDE
     Indication: Medication dilution
     Dosage: UNK
     Route: 065
  12. SODIUM CHLORIDE [Suspect]
     Active Substance: SODIUM CHLORIDE
     Dosage: UNK
     Route: 042
  13. TENOFOVIR [Suspect]
     Active Substance: TENOFOVIR
     Indication: Product used for unknown indication
     Dosage: 245 MG (MILLIGRAM) AT AN UNSPECIFIED FREQUENCY
     Route: 048
     Dates: start: 20230504
  14. WATER [Suspect]
     Active Substance: WATER
     Indication: Product used for unknown indication
     Dosage: UNK
     Route: 065
  15. WATER [Suspect]
     Active Substance: WATER
     Indication: Medication dilution
     Dosage: UNK
     Route: 065
  16. WATER [Suspect]
     Active Substance: WATER
     Dosage: UNK
     Route: 042

REACTIONS (1)
  - Thrombosis [Recovering/Resolving]

NARRATIVE: CASE EVENT DATE: 20240219
